FAERS Safety Report 8460617-4 (Version None)
Quarter: 2012Q2

REPORT INFORMATION
  Report Type: 
  Country: None (occurrence: None)
  Receive Date: 20120622
  Receipt Date: 20120611
  Transmission Date: 20120825
  Serious: No
  Sender: FDA-Public Use
  Company Number: US-ASTRAZENECA-2012SE38828

PATIENT
  Age: 74 Year
  Sex: Female
  Weight: 69.4 kg

DRUGS (9)
  1. GABAPENTIN [Concomitant]
     Indication: SPINAL FUSION SURGERY
  2. PRILOSEC [Suspect]
     Route: 048
  3. OGEN [Concomitant]
     Indication: BLOOD OESTROGEN
  4. VALTERON [Concomitant]
     Indication: ARTHRITIS
  5. OGEN [Concomitant]
     Indication: HYSTERECTOMY
  6. NEXIUM [Suspect]
     Indication: ORAL DISCOMFORT
     Route: 048
  7. VASOTEC [Concomitant]
     Indication: HYPERTENSION
  8. PRILOSEC [Suspect]
     Indication: GASTROOESOPHAGEAL REFLUX DISEASE
     Route: 048
  9. METOPROLOL TARTRATE [Concomitant]
     Indication: BLOOD PRESSURE ABNORMAL

REACTIONS (5)
  - FATIGUE [None]
  - ABDOMINAL DISCOMFORT [None]
  - HEADACHE [None]
  - ADVERSE EVENT [None]
  - NAUSEA [None]
